FAERS Safety Report 7364245-3 (Version None)
Quarter: 2011Q1

REPORT INFORMATION
  Report Type: 
  Country: None (occurrence: None)
  Receive Date: 20110321
  Receipt Date: 20110308
  Transmission Date: 20110831
  Serious: Yes (Other)
  Sender: FDA-Public Use
  Company Number: A0917162A

PATIENT
  Age: 43 Year
  Sex: Male

DRUGS (14)
  1. ASCORBIC ACID [Concomitant]
  2. IRON [Concomitant]
  3. TRAZODONE [Concomitant]
  4. INDERAL [Concomitant]
  5. ACETAMINOPHEN [Concomitant]
  6. SEROQUEL [Concomitant]
  7. PREVACID [Concomitant]
  8. VITAMIN D [Concomitant]
  9. LACTULOSE [Concomitant]
  10. NICOTINE PATCH [Concomitant]
  11. DUONEB [Concomitant]
  12. PERCOCET [Concomitant]
  13. LAMOTRIGINE [Suspect]
     Dosage: 200MG TWICE PER DAY
     Route: 048
     Dates: start: 20110208, end: 20110305
  14. HEPARIN SODIUM [Concomitant]

REACTIONS (2)
  - MENINGITIS ASEPTIC [None]
  - RASH [None]
